FAERS Safety Report 9563541 (Version 1)
Quarter: 2013Q1

REPORT INFORMATION
  Report Type: Spontaneous
  Country: US (occurrence: None)
  Receive Date: 20121218
  Receipt Date: 20121218
  Transmission Date: 20140127
  Serious: Yes (Other)
  Sender: FDA-Public Use
  Company Number: PHEH2012US002060

PATIENT
  Age: 68 Year
  Sex: Male

DRUGS (2)
  1. ZOMETA [Suspect]
     Dates: start: 20090804, end: 20101206
  2. OCTREOTIDE (OCTREOTIDE) [Concomitant]

REACTIONS (2)
  - Renal failure [None]
  - Nephropathy toxic [None]
